FAERS Safety Report 12288248 (Version 1)
Quarter: 2016Q2

REPORT INFORMATION
  Report Type: Spontaneous
  Country: RU (occurrence: RU)
  Receive Date: 20160420
  Receipt Date: 20160420
  Transmission Date: 20160815
  Serious: Yes (Death, Life-Threatening)
  Sender: FDA-Public Use
  Company Number: RU-ASTRAZENECA-2016SE41520

PATIENT
  Age: 50 Year
  Sex: Female
  Weight: 150 kg

DRUGS (1)
  1. FORXIGA [Suspect]
     Active Substance: DAPAGLIFLOZIN
     Indication: TYPE 2 DIABETES MELLITUS
     Route: 048
     Dates: start: 201512, end: 201512

REACTIONS (5)
  - Myocardial ischaemia [Fatal]
  - Therapy cessation [Unknown]
  - Dizziness [Unknown]
  - Urinary retention [Unknown]
  - Headache [Unknown]

NARRATIVE: CASE EVENT DATE: 201512
